FAERS Safety Report 11784735 (Version 1)
Quarter: 2015Q4

REPORT INFORMATION
  Report Type: Spontaneous
  Country: US (occurrence: US)
  Receive Date: 20151130
  Receipt Date: 20151130
  Transmission Date: 20160305
  Serious: Yes (Hospitalization)
  Sender: FDA-Public Use
  Company Number: US-BEH-2015055989

PATIENT
  Sex: Male
  Weight: 8.4 kg

DRUGS (14)
  1. BACTRIM [Concomitant]
     Active Substance: SULFAMETHOXAZOLE\TRIMETHOPRIM
  2. ROBINUL [Concomitant]
     Active Substance: GLYCOPYRROLATE
  3. LACRI-LUBE [Concomitant]
  4. CALCITRIOL. [Concomitant]
     Active Substance: CALCITRIOL
  5. ELEMENTAL CALCIUM [Concomitant]
  6. EPIPEN [Concomitant]
     Active Substance: EPINEPHRINE
  7. HIZENTRA [Suspect]
     Active Substance: HUMAN IMMUNOGLOBULIN G
     Indication: MULTIPLE CONGENITAL ABNORMALITIES
     Route: 058
  8. LIDOCAINE. [Concomitant]
     Active Substance: LIDOCAINE
  9. SOTALOL. [Concomitant]
     Active Substance: SOTALOL
  10. LEVOTHYROXINE. [Concomitant]
     Active Substance: LEVOTHYROXINE
  11. NYSTATIN. [Concomitant]
     Active Substance: NYSTATIN
  12. DIPHENHYDRAMINE. [Concomitant]
     Active Substance: DIPHENHYDRAMINE
  13. AZITHROMYCIN [Concomitant]
     Active Substance: AZITHROMYCIN ANHYDROUS
  14. GENTAMICIN. [Concomitant]
     Active Substance: GENTAMICIN

REACTIONS (3)
  - Gastric infection [Unknown]
  - Nasopharyngitis [Unknown]
  - Drug dose omission [Unknown]
